FAERS Safety Report 23725162 (Version 4)
Quarter: 2024Q2

REPORT INFORMATION
  Report Type: Spontaneous
  Country: EG (occurrence: EG)
  Receive Date: 20240410
  Receipt Date: 20240624
  Transmission Date: 20240716
  Serious: Yes (Other)
  Sender: FDA-Public Use
  Company Number: EG-NOVOPROD-1198832

PATIENT
  Age: 724 Month
  Sex: Female
  Weight: 65 kg

DRUGS (3)
  1. INSULIN HUMAN [Suspect]
     Active Substance: INSULIN HUMAN
     Dosage: UNK (DOSE INCREASED)
     Route: 058
  2. INSULIN HUMAN [Suspect]
     Active Substance: INSULIN HUMAN
     Indication: Type 1 diabetes mellitus
     Dosage: 70 IU, QD(50 IU AM AND 20 IU PM)
     Route: 058
  3. NEUROVIT [CYANOCOBALAMIN;PYRIDOXINE HYDROCHLORIDE;THIAMINE MONONITRATE [Concomitant]
     Dosage: UNK, ONCE DAILY

REACTIONS (4)
  - Cataract [Recovered/Resolved]
  - Retinal infiltrates [Recovered/Resolved]
  - Hyperglycaemia [Recovered/Resolved]
  - Cataract [Not Recovered/Not Resolved]
